FAERS Safety Report 14579391 (Version 1)
Quarter: 2018Q1

REPORT INFORMATION
  Report Type: Spontaneous
  Country: US (occurrence: US)
  Receive Date: 20180227
  Receipt Date: 20180227
  Transmission Date: 20180509
  Serious: Yes (Other)
  Sender: FDA-Public Use
  Company Number: US-OTSUKA-DJ201405513

PATIENT

DRUGS (2)
  1. CLOMIPRAMINE [Concomitant]
     Active Substance: CLOMIPRAMINE
     Route: 065
  2. ABILIFY [Suspect]
     Active Substance: ARIPIPRAZOLE
     Indication: DEPRESSION
     Route: 065

REACTIONS (2)
  - Tooth fracture [Unknown]
  - Amnesia [Unknown]
